FAERS Safety Report 9339916 (Version 2)
Quarter: 2013Q2

REPORT INFORMATION
  Report Type: Spontaneous
  Country: US (occurrence: US)
  Receive Date: 20130610
  Receipt Date: 20130625
  Transmission Date: 20140414
  Serious: Yes (Other)
  Sender: FDA-Public Use
  Company Number: US-BRISTOL-MYERS SQUIBB COMPANY-18953380

PATIENT
  Age: 64 Year
  Sex: Female
  Weight: 90.7 kg

DRUGS (8)
  1. BYDUREON [Suspect]
     Indication: TYPE 2 DIABETES MELLITUS
     Route: 058
     Dates: start: 20130523, end: 20130524
  2. BYETTA [Suspect]
  3. SOTALOL [Concomitant]
  4. SYNTHROID [Concomitant]
  5. METFORMIN [Concomitant]
     Dosage: TABS
  6. CRESTOR [Concomitant]
  7. VITAMIN D3 [Concomitant]
  8. MVI [Concomitant]

REACTIONS (1)
  - Atrial fibrillation [Unknown]
